FAERS Safety Report 8512944-X (Version None)
Quarter: 2012Q3

REPORT INFORMATION
  Report Type: 
  Country: None (occurrence: None)
  Receive Date: 20120716
  Receipt Date: 20120705
  Transmission Date: 20120928
  Serious: Yes (Other)
  Sender: FDA-Public Use
  Company Number: US-VERTEX PHARMACEUTICALS INC.-AE-2012-010078

PATIENT
  Sex: Male

DRUGS (5)
  1. RIBAVIRIN [Concomitant]
     Indication: HEPATITIS C
     Dates: start: 20111213
  2. PROCRIT [Concomitant]
  3. RIBAVIRIN [Concomitant]
  4. INCIVEK [Suspect]
     Indication: HEPATITIS C
     Route: 048
     Dates: start: 20111213, end: 20120307
  5. PEGASYS [Concomitant]
     Indication: HEPATITIS C
     Dates: start: 20111213

REACTIONS (5)
  - SYNCOPE [None]
  - WEIGHT DECREASED [None]
  - ASTHENIA [None]
  - DIZZINESS [None]
  - BLOOD POTASSIUM DECREASED [None]
